FAERS Safety Report 19234749 (Version 1)
Quarter: 2021Q2

REPORT INFORMATION
  Report Type: Spontaneous
  Country: US (occurrence: US)
  Receive Date: 20210509
  Receipt Date: 20210509
  Transmission Date: 20210717
  Serious: No
  Sender: FDA-Public Use
  Company Number: US-LUPIN PHARMACEUTICALS INC.-2021-06174

PATIENT
  Age: 73 Year
  Sex: Male

DRUGS (10)
  1. LENALIDOMIDE [Concomitant]
     Active Substance: LENALIDOMIDE
     Indication: LICHEN MYXOEDEMATOSUS
     Dosage: 15 MILLIGRAM, QD (ON DAYS 1 TO 21)
     Route: 065
  2. DEXAMETHASONE. [Concomitant]
     Active Substance: DEXAMETHASONE
     Dosage: 32 MILLIGRAM PER WEEK (DECREASED DUE TO CONCERN OF CHRONIC STEROID USE AND IRRITABILITY ON OFF DAYS.
     Route: 065
  3. METHOTREXATE. [Concomitant]
     Active Substance: METHOTREXATE
     Indication: LICHEN MYXOEDEMATOSUS
     Dosage: UNK
     Route: 065
  4. LENALIDOMIDE [Concomitant]
     Active Substance: LENALIDOMIDE
     Dosage: 10 MILLIGRAM, QD (DECREASED DUE TO COMPLAINT OF FATIGUE FOR SECOND CYCLE AND LATER CONTINUED AT SAME
     Route: 065
  5. BORTEZOMIB. [Concomitant]
     Active Substance: BORTEZOMIB
     Indication: LICHEN MYXOEDEMATOSUS
     Dosage: 1.3 MILLIGRAM/SQ. METER (FOR ONE CYCLE (3WEEK CYCLE). HELD AFTER ONE CYCLE DUE TO WORSENING PERIPHER
     Route: 065
  6. PREDNISONE. [Concomitant]
     Active Substance: PREDNISONE
     Dosage: 5 MILLIGRAM, QD (STARTED AFTER DISCONTINUATION OF DEXAMETHASONE ALONG WITH LENALIDOMIDE ON DAYS 1 TO
     Route: 065
  7. DEXAMETHASONE. [Concomitant]
     Active Substance: DEXAMETHASONE
     Indication: LICHEN MYXOEDEMATOSUS
     Dosage: 40 MILLIGRAM PER WEEK (ON A 35 DAY CYCLE)
     Route: 065
  8. IMMUNOGLOBULIN [IMMUNOGLOBULIN HUMAN NORMAL] [Concomitant]
     Active Substance: HUMAN IMMUNOGLOBULIN G
     Indication: LICHEN MYXOEDEMATOSUS
     Dosage: UNK
     Route: 042
  9. TESTOSTERONE. [Suspect]
     Active Substance: TESTOSTERONE
     Indication: SUPPLEMENTATION THERAPY
     Dosage: UNK
     Route: 065
  10. PREDNISONE. [Concomitant]
     Active Substance: PREDNISONE
     Indication: LICHEN MYXOEDEMATOSUS
     Dosage: 40 MILLIGRAM, QD  (AT THE TIME OF PRESENTATION TO ANOTHER UNIVERSITY HOSPITAL. LATER, TAPERED AND ST
     Route: 065

REACTIONS (1)
  - Haemoglobin increased [Unknown]
